FAERS Safety Report 13631432 (Version 1)
Quarter: 2017Q2

REPORT INFORMATION
  Report Type: Spontaneous
  Country: US (occurrence: US)
  Receive Date: 20170531
  Receipt Date: 20170531
  Transmission Date: 20170830
  Serious: No
  Sender: FDA-Public Use
  Company Number: US-ASTELLAS-1382851

PATIENT

DRUGS (1)
  1. TARCEVA [Suspect]
     Active Substance: ERLOTINIB HYDROCHLORIDE
     Indication: LUNG NEOPLASM MALIGNANT
     Route: 065
     Dates: start: 201402

REACTIONS (6)
  - Pleural effusion [Unknown]
  - Rash [Unknown]
  - Generalised oedema [Unknown]
  - Constipation [Unknown]
  - Oedema peripheral [Not Recovered/Not Resolved]
  - Diarrhoea [Unknown]
